FAERS Safety Report 16759998 (Version 2)
Quarter: 2019Q3

REPORT INFORMATION
  Report Type: Spontaneous
  Country: CL (occurrence: CL)
  Receive Date: 20190830
  Receipt Date: 20190929
  Transmission Date: 20191005
  Serious: Yes (Other)
  Sender: FDA-Public Use
  Company Number: PHHY2019CL200334

PATIENT
  Age: 42 Year
  Sex: Female

DRUGS (4)
  1. TAREG [Suspect]
     Active Substance: VALSARTAN
     Indication: PRODUCT USED FOR UNKNOWN INDICATION
     Dosage: 160 MG, UNK
     Route: 065
  2. TAREG [Suspect]
     Active Substance: VALSARTAN
     Dosage: 80 UNK, UNK
     Route: 065
  3. METILDOPA [Suspect]
     Active Substance: METHYLDOPA
     Indication: PRODUCT USED FOR UNKNOWN INDICATION
     Route: 065
     Dates: start: 201901
  4. TAREG [Suspect]
     Active Substance: VALSARTAN
     Dosage: UNK, QD
     Route: 065
     Dates: end: 201908

REACTIONS (6)
  - Maternal exposure during pregnancy [Unknown]
  - Abortion [Unknown]
  - Osteoarthritis [Unknown]
  - Blood pressure systolic increased [Unknown]
  - Hypertensive crisis [Unknown]
  - Treatment failure [Unknown]
